FAERS Safety Report 13068681 (Version 1)
Quarter: 2016Q4

REPORT INFORMATION
  Report Type: Spontaneous
  Country: FR (occurrence: FR)
  Receive Date: 20161228
  Receipt Date: 20161228
  Transmission Date: 20170207
  Serious: Yes (Other)
  Sender: FDA-Public Use
  Company Number: FR-PFIZER INC-2016593204

PATIENT
  Age: 52 Year
  Sex: Female

DRUGS (19)
  1. ARACYTINE [Suspect]
     Active Substance: CYTARABINE
     Indication: B-CELL LYMPHOMA
     Dosage: UNK
     Route: 042
     Dates: start: 20161116, end: 20161120
  2. ACICLOVIR [Suspect]
     Active Substance: ACYCLOVIR
     Indication: PRODUCT USED FOR UNKNOWN INDICATION
     Dosage: UNK
     Route: 042
     Dates: start: 20161128, end: 20161203
  3. PIPERACILLIN/TAZOBACTAM [Suspect]
     Active Substance: PIPERACILLIN SODIUM\TAZOBACTAM SODIUM
     Indication: PRODUCT USED FOR UNKNOWN INDICATION
     Dosage: UNK
     Route: 042
     Dates: start: 20161117, end: 20161130
  4. OXYNORM [Concomitant]
     Active Substance: OXYCODONE HYDROCHLORIDE
  5. CYMBALTA [Concomitant]
     Active Substance: DULOXETINE HYDROCHLORIDE
  6. NEFOPAM [Concomitant]
     Active Substance: NEFOPAM
  7. ETOPOSIDE. [Suspect]
     Active Substance: ETOPOSIDE
     Indication: B-CELL LYMPHOMA
     Dosage: UNK
     Route: 042
     Dates: start: 20161117, end: 20161120
  8. AMIKACINE /00391001/ [Suspect]
     Active Substance: AMIKACIN
     Indication: INFECTION
     Dosage: UNK
     Route: 042
     Dates: start: 20161129, end: 20161201
  9. ZOPHREN /00955302/ [Concomitant]
     Active Substance: ONDANSETRON
     Dosage: UNK
     Dates: start: 20161116, end: 20161120
  10. BISOCE [Concomitant]
     Active Substance: BISOPROLOL
  11. LEVETIRACETAM. [Concomitant]
     Active Substance: LEVETIRACETAM
  12. PANTOPRAZOLE [Concomitant]
     Active Substance: PANTOPRAZOLE SODIUM
  13. ALPRAZOLAM. [Concomitant]
     Active Substance: ALPRAZOLAM
  14. LAROXYL [Concomitant]
     Active Substance: AMITRIPTYLINE
  15. VERSATIS [Concomitant]
     Active Substance: LIDOCAINE
  16. INNOHEP [Concomitant]
     Active Substance: TINZAPARIN SODIUM
  17. HYDROXYZINE [Concomitant]
     Active Substance: HYDROXYZINE\HYDROXYZINE HYDROCHLORIDE
  18. ULCAR /00434701/ [Concomitant]
     Dosage: UNK
     Dates: start: 20161124
  19. NIVESTIM [Concomitant]
     Active Substance: FILGRASTIM
     Dosage: UNK
     Dates: start: 20161124, end: 20161130

REACTIONS (5)
  - Polyuria [Recovering/Resolving]
  - Proteinuria [Unknown]
  - Hypokalaemia [Recovered/Resolved]
  - Hypernatraemia [Recovered/Resolved]
  - Renal tubular disorder [Unknown]

NARRATIVE: CASE EVENT DATE: 20161130
